FAERS Safety Report 7683038-0 (Version None)
Quarter: 2011Q3

REPORT INFORMATION
  Report Type: 
  Country: None (occurrence: None)
  Receive Date: 20110812
  Receipt Date: 20110812
  Transmission Date: 20111222
  Serious: Yes (Life-Threatening, Other)
  Sender: FDA-Public Use
  Company Number: None

PATIENT
  Sex: Female
  Weight: 54.4316 kg

DRUGS (2)
  1. RISPERIDONE [Suspect]
     Indication: BIPOLAR I DISORDER
     Dosage: 1 TABLET MG AT NITE BEFORE BED BY MOUTH
     Route: 048
     Dates: start: 20110801
  2. RISPERIDONE [Suspect]
     Indication: AFFECTIVE DISORDER
     Dosage: 1 TABLET MG AT NITE BEFORE BED BY MOUTH
     Route: 048
     Dates: start: 20110801

REACTIONS (16)
  - DRY MOUTH [None]
  - COUGH [None]
  - CHILLS [None]
  - DYSPHONIA [None]
  - MICTURITION URGENCY [None]
  - SUICIDAL IDEATION [None]
  - FEELING ABNORMAL [None]
  - DYSKINESIA [None]
  - IRRITABILITY [None]
  - AFFECTIVE DISORDER [None]
  - DIZZINESS [None]
  - FEELING HOT [None]
  - POLYDIPSIA [None]
  - PARAESTHESIA [None]
  - HEART RATE INCREASED [None]
  - AGITATION [None]
